FAERS Safety Report 5085437-2 (Version None)
Quarter: 2006Q3

REPORT INFORMATION
  Report Type: 
  Country: None (occurrence: None)
  Receive Date: 20060822
  Receipt Date: 20050218
  Transmission Date: 20061208
  Serious: Yes (Hospitalization)
  Sender: FDA-Public Use
  Company Number: PHHO2005US02992

PATIENT
  Age: 65 Year
  Sex: Male
  Weight: 85.3 kg

DRUGS (18)
  1. LOTREL [Suspect]
     Indication: HYPERTENSION
     Dosage: LEVEL 1
     Route: 048
     Dates: start: 20040701, end: 20040707
  2. LOTREL [Suspect]
     Dosage: LEVEL 2
     Route: 048
     Dates: start: 20040708, end: 20040722
  3. LOTREL [Suspect]
     Dosage: LEVEL 3
     Dates: start: 20040723, end: 20050211
  4. LOTREL [Suspect]
     Dosage: OFF STUDY MEDICATION
     Route: 048
     Dates: start: 20050212, end: 20050216
  5. LOTREL [Suspect]
     Dosage: UNK, LEVEL 1
     Dates: start: 20050217
  6. HYDRALAZINE HCL [Suspect]
     Dosage: 50 MG, BID
     Route: 048
     Dates: start: 20041123, end: 20050212
  7. HYDRALAZINE HCL [Suspect]
     Dosage: 50 MG, TID
     Route: 048
     Dates: start: 20050213, end: 20050216
  8. HYDRALAZINE HCL [Suspect]
     Dosage: 50 MG, BID
     Route: 048
     Dates: start: 20050217, end: 20050405
  9. HYDRALAZINE HCL [Suspect]
     Dosage: 25 MG, BID
     Dates: start: 20050406, end: 20050411
  10. COREG [Suspect]
     Dosage: 3.125 MG, BID
     Route: 048
     Dates: start: 20040806, end: 20040915
  11. COREG [Suspect]
     Dosage: 6.25 MG, BID
     Route: 048
     Dates: start: 20040916, end: 20041219
  12. COREG [Suspect]
     Dosage: 3.125 MG, BID
     Route: 048
     Dates: start: 20041220, end: 20050111
  13. CLONIDINE [Suspect]
     Dosage: 0.1 MG, BID
     Route: 048
     Dates: start: 20040830, end: 20040921
  14. CLONIDINE [Suspect]
     Dosage: 0.2 MG, BID
     Dates: start: 20040922, end: 20050212
  15. CLONIDINE [Suspect]
     Dosage: 0.1 MG, QD
     Dates: start: 20050213, end: 20050405
  16. TERAZOSIN [Suspect]
     Dosage: 1 MG, QD
     Dates: start: 20041004, end: 20041029
  17. TERAZOSIN [Suspect]
     Dosage: 5 MG, QD
     Dates: start: 20041030, end: 20050405
  18. LASIX [Concomitant]

REACTIONS (5)
  - ASTHENIA [None]
  - BRADYCARDIA [None]
  - DEHYDRATION [None]
  - HYPOTENSION [None]
  - SYNCOPE [None]
